FAERS Safety Report 6253157-4 (Version None)
Quarter: 2009Q2

REPORT INFORMATION
  Report Type: 
  Country: None (occurrence: None)
  Receive Date: 20090629
  Receipt Date: 20090629
  Transmission Date: 20091009
  Serious: No
  Sender: FDA-Public Use
  Company Number: None

PATIENT
  Sex: Female
  Weight: 70.3075 kg

DRUGS (1)
  1. VERAMYST [Suspect]
     Indication: MULTIPLE ALLERGIES
     Dosage: 1 PUFF PER NOSTRIL QD NASAL
     Route: 045
     Dates: start: 20090303, end: 20090626

REACTIONS (3)
  - DEVICE MALFUNCTION [None]
  - DRUG DOSE OMISSION [None]
  - PRODUCT QUALITY ISSUE [None]
